FAERS Safety Report 24542333 (Version 1)
Quarter: 2024Q4

REPORT INFORMATION
  Report Type: Spontaneous
  Country: CN (occurrence: CN)
  Receive Date: 20241023
  Receipt Date: 20241023
  Transmission Date: 20250115
  Serious: Yes (Other)
  Sender: AMGEN
  Company Number: CN-AMGEN-CHNSP2024209848

PATIENT
  Age: 62 Year
  Sex: Male
  Weight: 60 kg

DRUGS (2)
  1. XGEVA [Suspect]
     Active Substance: DENOSUMAB
     Indication: Lung adenocarcinoma stage IV
     Dosage: 120 MILLIGRAM
     Route: 058
     Dates: start: 20241010, end: 20241010
  2. XGEVA [Suspect]
     Active Substance: DENOSUMAB
     Indication: Metastases to bone

REACTIONS (1)
  - Hepatic enzyme increased [Recovering/Resolving]
